FAERS Safety Report 12721912 (Version 1)
Quarter: 2016Q3

REPORT INFORMATION
  Report Type: Spontaneous
  Country: FR (occurrence: FR)
  Receive Date: 20160907
  Receipt Date: 20160907
  Transmission Date: 20161109
  Serious: Yes (Other)
  Sender: FDA-Public Use
  Company Number: FR-SA-2016SA161335

PATIENT
  Age: 70 Year
  Sex: Male

DRUGS (2)
  1. AMOXICILLIN. [Concomitant]
     Active Substance: AMOXICILLIN
     Indication: DEVICE RELATED INFECTION
  2. RIFAMPICIN [Suspect]
     Active Substance: RIFAMPIN
     Indication: DEVICE RELATED INFECTION
     Route: 065
     Dates: start: 2005

REACTIONS (4)
  - Double stranded DNA antibody positive [Recovered/Resolved]
  - Blood creatinine increased [Recovered/Resolved]
  - Systemic lupus erythematosus [Recovered/Resolved]
  - Antinuclear antibody positive [Recovered/Resolved]
